FAERS Safety Report 4880272-X (Version None)
Quarter: 2006Q1

REPORT INFORMATION
  Report Type: 
  Country: None (occurrence: None)
  Receive Date: 20060111
  Receipt Date: 20051230
  Transmission Date: 20060701
  Serious: Yes (Other)
  Sender: FDA-Public Use
  Company Number: 2006003238

PATIENT
  Sex: Male

DRUGS (2)
  1. XANAX [Suspect]
     Indication: ILL-DEFINED DISORDER
  2. VIAGRA [Suspect]
     Indication: ILL-DEFINED DISORDER

REACTIONS (1)
  - DISABILITY [None]
